FAERS Safety Report 10362592 (Version 1)
Quarter: 2014Q3

REPORT INFORMATION
  Report Type: Spontaneous
  Country: JP (occurrence: None)
  Receive Date: 20140728
  Receipt Date: 20140728
  Transmission Date: 20150326
  Serious: Yes (Hospitalization)
  Sender: FDA-Public Use
  Company Number: SYM-2014-20362

PATIENT
  Age: 33 Year
  Sex: Female
  Weight: 50 kg

DRUGS (8)
  1. LIORESAL [Concomitant]
     Active Substance: BACLOFEN
  2. GASMOTIN (MOSAPRIDE CITRATE) [Concomitant]
     Active Substance: MOSAPRIDE CITRATE
  3. BIO-THREE (BIO-THREE) (CLOSTRIDIUM BUTYRICUM, ENTEROCOCCUS FAECALIS, BACILLUS MESENTERICUS) [Concomitant]
  4. GASCON (DIMETICONE) [Concomitant]
  5. MEILAX (ETHYL LOFLAZEPATE) [Concomitant]
  6. VITANEURIN (THIAMINE HYDROCHLORIDE) [Concomitant]
  7. SELBEX (TEPRENONE) [Concomitant]
     Active Substance: TEPRENONE
  8. CHOREAZINE [Suspect]
     Active Substance: TETRABENAZINE
     Indication: HUNTINGTON^S DISEASE
     Route: 048
     Dates: start: 20130304, end: 20130331

REACTIONS (1)
  - Urinary tract infection [None]

NARRATIVE: CASE EVENT DATE: 20130722
